FAERS Safety Report 8017350-2 (Version None)
Quarter: 2012Q1

REPORT INFORMATION
  Report Type: 
  Country: None (occurrence: None)
  Receive Date: 20120102
  Receipt Date: 20111228
  Transmission Date: 20120608
  Serious: Yes (Hospitalization)
  Sender: FDA-Public Use
  Company Number: AU-ROCHE-1026026

PATIENT
  Sex: Male

DRUGS (7)
  1. AMLODIPINE [Concomitant]
     Dates: start: 20090101
  2. METOCLOPRAMIDE [Concomitant]
     Route: 048
     Dates: start: 20110101
  3. OMEPRAZOLE SR [Concomitant]
     Route: 048
  4. AVASTIN [Suspect]
     Indication: GLIOBLASTOMA MULTIFORME
     Dates: start: 20111205
  5. CARBAMAZEPINE [Concomitant]
     Route: 048
     Dates: start: 20101001
  6. OLMESARTAN MEDOXOMIL AND HYDROCHLOROTHIZIDE [Concomitant]
     Dates: start: 20090101
  7. CITALOPRAM HYDROBROMIDE [Concomitant]
     Route: 048
     Dates: start: 20011207

REACTIONS (1)
  - BLOOD CREATININE INCREASED [None]
